FAERS Safety Report 6654132-8 (Version None)
Quarter: 2010Q1

REPORT INFORMATION
  Report Type: 
  Country: None (occurrence: None)
  Receive Date: 20100326
  Receipt Date: 20100315
  Transmission Date: 20100710
  Serious: Yes (Hospitalization)
  Sender: FDA-Public Use
  Company Number: FR-PFIZER INC-2010032686

PATIENT
  Age: 71 Year
  Sex: Female

DRUGS (10)
  1. LYRICA [Suspect]
     Dosage: 25 MG, 2X/DAY
     Route: 048
     Dates: start: 20091101, end: 20091108
  2. PIRACETAM [Suspect]
     Dosage: 1 DF, 3X/DAY
  3. SEGLOR [Suspect]
     Dosage: 5 MG, 2X/DAY
     Route: 048
  4. PREDNISOLONE [Suspect]
     Dosage: 20 MG, 1X/DAY
     Route: 048
     Dates: start: 20091101, end: 20091108
  5. FUNGIZONE [Suspect]
     Dosage: 1 DF, 3X/DAY
     Dates: start: 20091101, end: 20091108
  6. STABLON [Suspect]
     Dosage: 12.5 MG, 3X/DAY
     Route: 048
     Dates: end: 20091108
  7. SINEMET [Suspect]
     Dosage: 1 DF, 1X/DAY
  8. STRESAM [Suspect]
     Dosage: 5 MG, (ONE IN THE MORNING, AT NOON, EVENING AND 2 BEFORE SLEEPING)
     Route: 048
     Dates: end: 20091108
  9. EUTHYRAL [Suspect]
     Dosage: 1 DF, 1X/DAY
  10. VITAMIN E [Concomitant]
     Dosage: 500 MG, 2X/DAY

REACTIONS (1)
  - TONGUE NECROSIS [None]
